FAERS Safety Report 10472917 (Version 1)
Quarter: 2014Q3

REPORT INFORMATION
  Report Type: Spontaneous
  Country: FR (occurrence: FR)
  Receive Date: 20140924
  Receipt Date: 20140924
  Transmission Date: 20150326
  Serious: Yes (Hospitalization)
  Sender: FDA-Public Use
  Company Number: PHHY2014FR117382

PATIENT
  Age: 70 Year
  Sex: Male

DRUGS (8)
  1. ONBREZ [Suspect]
     Active Substance: INDACATEROL
     Dosage: UNK UKN, UNK
     Route: 055
     Dates: end: 20140818
  2. AMIODARONE [Suspect]
     Active Substance: AMIODARONE
     Dosage: UNK UKN, UNK
     Route: 048
     Dates: end: 20140818
  3. PREVISCAN [Suspect]
     Active Substance: FLUINDIONE
     Dosage: UNK UKN, UNK
     Route: 048
     Dates: end: 20140818
  4. RAMIPRIL. [Suspect]
     Active Substance: RAMIPRIL
     Dosage: UNK UKN, UNK
     Route: 048
     Dates: end: 20140818
  5. ZOLPIDEM [Suspect]
     Active Substance: ZOLPIDEM\ZOLPIDEM TARTRATE
     Dosage: UNK UKN, UNK
     Route: 048
     Dates: end: 20140818
  6. SERESTA [Suspect]
     Active Substance: OXAZEPAM
     Dosage: UNK UKN, UNK
     Dates: end: 20140818
  7. LASILIX [Concomitant]
     Active Substance: FUROSEMIDE
     Dosage: UNK UKN, UNK
  8. CARDENSIEL [Suspect]
     Active Substance: BISOPROLOL FUMARATE
     Dosage: UNK UKN, UNK
     Route: 048
     Dates: end: 20140818

REACTIONS (1)
  - Lung disorder [Recovering/Resolving]

NARRATIVE: CASE EVENT DATE: 20140814
